FAERS Safety Report 4579108-6 (Version None)
Quarter: 2005Q1

REPORT INFORMATION
  Report Type: 
  Country: None (occurrence: None)
  Receive Date: 20050119
  Receipt Date: 20040825
  Transmission Date: 20050727
  Serious: Yes (Hospitalization)
  Sender: FDA-Public Use
  Company Number: A03200402935

PATIENT
  Age: 80 Year
  Sex: Female
  Weight: 53.5244 kg

DRUGS (2)
  1. PLAVIX [Suspect]
     Indication: EXTRASYSTOLES
     Dosage: 75 MG QD - ORAL
     Route: 048
     Dates: start: 20040101, end: 20040601
  2. ACETYLSALICYLIC ACID SRT [Concomitant]

REACTIONS (4)
  - CONTUSION [None]
  - EYE PAIN [None]
  - PERIORBITAL HAEMATOMA [None]
  - RETINAL HAEMORRHAGE [None]
